FAERS Safety Report 25014066 (Version 1)
Quarter: 2025Q1

REPORT INFORMATION
  Report Type: Spontaneous
  Country: US (occurrence: US)
  Receive Date: 20250226
  Receipt Date: 20250226
  Transmission Date: 20250409
  Serious: No
  Sender: B BRAUN
  Company Number: US-B.Braun Medical Inc.-2171799

PATIENT
  Age: 77 Year
  Sex: Male

DRUGS (3)
  1. CEFOXITIN AND DEXTROSE [Suspect]
     Active Substance: CEFOXITIN SODIUM
     Indication: Infection
     Dates: start: 20240820, end: 20240910
  2. OMADACYCLINE [Concomitant]
     Active Substance: OMADACYCLINE
  3. AZITHROMYCIN [Concomitant]
     Active Substance: AZITHROMYCIN

REACTIONS (1)
  - Diarrhoea [Unknown]
